FAERS Safety Report 8933499 (Version 1)
Quarter: 2012Q4

REPORT INFORMATION
  Report Type: 
  Country: CA (occurrence: CA)
  Receive Date: 20121129
  Receipt Date: 20121129
  Transmission Date: 20130627
  Serious: Yes (Other)
  Sender: FDA-Public Use
  Company Number: CA-ROCHE-1161270

PATIENT
  Age: 41 Year
  Sex: Female

DRUGS (1)
  1. XOLAIR [Suspect]
     Indication: ASTHMA
     Route: 065
     Dates: start: 20050819

REACTIONS (5)
  - Hypersensitivity [Unknown]
  - Chest discomfort [Unknown]
  - Ear infection [Not Recovered/Not Resolved]
  - Hypoacusis [Unknown]
  - Nausea [Unknown]
